FAERS Safety Report 9820255 (Version 6)
Quarter: 2014Q4

REPORT INFORMATION
  Report Type: Report from Study
  Country: DK (occurrence: DK)
  Receive Date: 20140116
  Receipt Date: 20141205
  Transmission Date: 20150529
  Serious: Yes (Hospitalization)
  Sender: FDA-Public Use
  Company Number: DK-NOVOPROD-394204

PATIENT
  Age: 57 Year
  Sex: Female
  Weight: 88 kg

DRUGS (4)
  1. MORFIN                             /00036301/ [Concomitant]
     Indication: ABDOMINAL PAIN
     Dosage: 2.5 MG, QD
     Dates: start: 20131121, end: 20131121
  2. LIRAGLUTIDE FLEXPEN [Suspect]
     Active Substance: LIRAGLUTIDE
     Dosage: 3 MG, QD
     Route: 058
     Dates: start: 20110818
  3. CONFORTID                          /00003801/ [Concomitant]
     Indication: ABDOMINAL PAIN
     Dosage: 50 MG, QD
     Dates: start: 20131121, end: 20131121
  4. LIRAGLUTIDE FLEXPEN [Suspect]
     Active Substance: LIRAGLUTIDE
     Indication: OBESITY
     Dosage: 0.6 MG, QD
     Route: 058
     Dates: start: 20110721

REACTIONS (5)
  - Abdominal pain [Recovered/Resolved]
  - Cholecystitis chronic [Recovered/Resolved]
  - Cholelithiasis [Recovered/Resolved]
  - Bile duct stone [Recovered/Resolved]
  - Cholelithiasis [Recovered/Resolved]

NARRATIVE: CASE EVENT DATE: 20131121
